FAERS Safety Report 4668191-5 (Version None)
Quarter: 2005Q2

REPORT INFORMATION
  Report Type: 
  Country: None (occurrence: None)
  Receive Date: 20050523
  Receipt Date: 20050124
  Transmission Date: 20051028
  Serious: Yes (Other)
  Sender: FDA-Public Use
  Company Number: PHEH2005US01303

PATIENT
  Age: 75 Year
  Sex: Female

DRUGS (4)
  1. ZOMETA [Suspect]
     Indication: MULTIPLE MYELOMA
     Dosage: 4 MG/ Q4WKS
     Dates: start: 20030915, end: 20050106
  2. ZOMETA [Suspect]
  3. MELPHALAN [Concomitant]
     Dosage: 16 MG, QD
  4. PREDNISONE [Concomitant]
     Dosage: 50 MG, BID

REACTIONS (1)
  - OSTEONECROSIS [None]
